FAERS Safety Report 6663986-0 (Version None)
Quarter: 2010Q2

REPORT INFORMATION
  Report Type: 
  Country: None (occurrence: None)
  Receive Date: 20100401
  Receipt Date: 20100326
  Transmission Date: 20101027
  Serious: Yes (Death, Life-Threatening, Disabling, Other)
  Sender: FDA-Public Use
  Company Number: JP-SANOFI-AVENTIS-A01200906441

PATIENT
  Age: 77 Year
  Sex: Female
  Weight: 38 kg

DRUGS (15)
  1. CLOPIDOGREL BISULFATE [Suspect]
     Indication: PERCUTANEOUS CORONARY INTERVENTION
     Dosage: UNIT DOSE: 75 MG
     Route: 048
     Dates: start: 20090510, end: 20090513
  2. CLOPIDOGREL BISULFATE [Suspect]
     Indication: STENT PLACEMENT
     Dosage: UNIT DOSE: 75 MG
     Route: 048
     Dates: start: 20090510, end: 20090513
  3. CLOPIDOGREL BISULFATE [Suspect]
     Indication: ACUTE MYOCARDIAL INFARCTION
     Dosage: UNIT DOSE: 75 MG
     Route: 048
     Dates: start: 20090510, end: 20090513
  4. UROKINASE [Suspect]
     Dosage: DOSE:120000 UNIT(S)
     Route: 065
     Dates: start: 20090609, end: 20090609
  5. UROKINASE [Suspect]
     Dosage: DOSE:240000 UNIT(S)
     Route: 065
     Dates: start: 20090610, end: 20090611
  6. ASPIRIN [Concomitant]
     Indication: CEREBRAL INFARCTION
     Route: 048
     Dates: start: 20090321, end: 20090513
  7. FAMOTIDINE [Concomitant]
     Indication: GASTRITIS
     Route: 048
     Dates: start: 20090321, end: 20090513
  8. NICORANDIL [Concomitant]
     Indication: ANGINA PECTORIS
     Route: 048
     Dates: start: 20090321, end: 20090513
  9. ISALON [Concomitant]
     Indication: HYPERTENSION
     Route: 048
     Dates: start: 20090321, end: 20090513
  10. MAGNESIUM OXIDE [Concomitant]
     Indication: CONSTIPATION
     Route: 048
     Dates: start: 20090321, end: 20090513
  11. DIOVAN [Concomitant]
     Indication: GASTRITIS
     Route: 048
     Dates: start: 20090321, end: 20090513
  12. LUVOX [Concomitant]
     Indication: ANXIETY DISORDER
     Route: 048
     Dates: start: 20090321, end: 20090513
  13. CALCITRIOL [Concomitant]
     Indication: OSTEOPOROSIS
     Route: 048
     Dates: start: 20090321, end: 20090513
  14. BEZATOL - SLOW RELEASE [Concomitant]
     Indication: HYPERLIPIDAEMIA
     Route: 048
     Dates: start: 20090321, end: 20090513
  15. BEZATOL - SLOW RELEASE [Concomitant]
     Indication: ANGINA PECTORIS
     Route: 048
     Dates: start: 20090321, end: 20090513

REACTIONS (8)
  - CEREBRAL INFARCTION [None]
  - HISTIOCYTOSIS HAEMATOPHAGIC [None]
  - LIVER DISORDER [None]
  - RENAL FAILURE ACUTE [None]
  - RENAL IMPAIRMENT [None]
  - THROMBOTIC THROMBOCYTOPENIC PURPURA [None]
  - UPPER GASTROINTESTINAL HAEMORRHAGE [None]
  - VASCULAR OCCLUSION [None]
